FAERS Safety Report 8675649 (Version 2)
Quarter: 2013Q4

REPORT INFORMATION
  Report Type: Report from Study
  Country: US (occurrence: US)
  Receive Date: 20120720
  Receipt Date: 20131108
  Transmission Date: 20140711
  Serious: Yes (Disabling, Other)
  Sender: FDA-Public Use
  Company Number: US-009507513-1207USA005427

PATIENT
  Age: 30 Year
  Sex: Female

DRUGS (3)
  1. REBETOL [Suspect]
     Dosage: UNK
     Dates: start: 201112
  2. VICTRELIS [Suspect]
     Indication: HEPATITIS C
     Dosage: UNK
     Dates: start: 201112
  3. PEGASYS [Concomitant]
     Indication: HEPATITIS C
     Dosage: UNK
     Dates: start: 201112

REACTIONS (1)
  - Disability [Unknown]
